FAERS Safety Report 8756556 (Version 3)
Quarter: 2012Q4

REPORT INFORMATION
  Report Type: 
  Country: US (occurrence: US)
  Receive Date: 20120903
  Receipt Date: 20121005
  Transmission Date: 20130627
  Serious: Yes (Hospitalization)
  Sender: FDA-Public Use
  Company Number: US-BIOGENIDEC-2012BI033132

PATIENT
  Age: 31 Year
  Sex: Female

DRUGS (7)
  1. AVONEX [Suspect]
     Indication: MULTIPLE SCLEROSIS
     Route: 030
     Dates: start: 20040313, end: 200406
  2. AVONEX [Suspect]
     Indication: MULTIPLE SCLEROSIS
     Route: 030
     Dates: start: 201206
  3. KLONOPIN [Concomitant]
  4. ZANAFLEX [Concomitant]
  5. ADDERALL [Concomitant]
  6. ROXICET ELIXER [Concomitant]
  7. PROTONIX [Concomitant]

REACTIONS (2)
  - Muscular weakness [Recovered/Resolved]
  - Memory impairment [Not Recovered/Not Resolved]
